FAERS Safety Report 16559990 (Version 2)
Quarter: 2019Q3

REPORT INFORMATION
  Report Type: Spontaneous
  Country: IT (occurrence: IT)
  Receive Date: 20190711
  Receipt Date: 20190918
  Transmission Date: 20191004
  Serious: Yes (Hospitalization, Other)
  Sender: FDA-Public Use
  Company Number: IT-SA-2019SA185115

PATIENT
  Age: 58 Year
  Sex: Female

DRUGS (6)
  1. SERTRALINE [Concomitant]
     Active Substance: SERTRALINE HYDROCHLORIDE
     Dosage: 50, UNK
     Route: 065
  2. LEMTRADA [Suspect]
     Active Substance: ALEMTUZUMAB
     Dosage: UNK UNK, UNK
     Route: 041
     Dates: start: 20171018, end: 20171020
  3. SATIVEX [Concomitant]
     Active Substance: NABIXIMOLS
     Dosage: 8, UNK
     Route: 065
  4. GABAPENTIN. [Concomitant]
     Active Substance: GABAPENTIN
     Dosage: 300, UNK
     Route: 065
  5. LEMTRADA [Suspect]
     Active Substance: ALEMTUZUMAB
     Dosage: UNK
     Route: 041
     Dates: start: 20161010, end: 20161014
  6. BACLOFEN. [Concomitant]
     Active Substance: BACLOFEN
     Dosage: 25, BID
     Route: 065

REACTIONS (8)
  - Hypokalaemia [Unknown]
  - Nausea [Unknown]
  - Hypothyroidism [Unknown]
  - Rhabdomyolysis [Unknown]
  - Blood thyroid stimulating hormone abnormal [Recovering/Resolving]
  - Vomiting [Unknown]
  - Transaminases abnormal [Recovered/Resolved]
  - Blood creatine phosphokinase increased [Recovered/Resolved]

NARRATIVE: CASE EVENT DATE: 201907
